FAERS Safety Report 6756529-4 (Version None)
Quarter: 2010Q2

REPORT INFORMATION
  Report Type: 
  Country: None (occurrence: None)
  Receive Date: 20100604
  Receipt Date: 20100512
  Transmission Date: 20101027
  Serious: Yes (Hospitalization)
  Sender: FDA-Public Use
  Company Number: B0658937A

PATIENT
  Age: 68 Year
  Sex: Male

DRUGS (7)
  1. ARTIST [Suspect]
     Indication: HYPERTENSION
     Dosage: 2.5MG PER DAY
     Route: 048
     Dates: start: 20090109
  2. LIPITOR [Suspect]
     Indication: DRUG USE FOR UNKNOWN INDICATION
     Route: 065
  3. ASPIRIN [Concomitant]
  4. CANDESARTAN [Concomitant]
  5. MICARDIS [Concomitant]
  6. LASIX [Concomitant]
  7. TAKEPRON [Concomitant]

REACTIONS (1)
  - HEPATIC FUNCTION ABNORMAL [None]
